FAERS Safety Report 10034008 (Version 2)
Quarter: 2014Q2

REPORT INFORMATION
  Report Type: Report from Study
  Country: FR (occurrence: FR)
  Receive Date: 20140325
  Receipt Date: 20140604
  Transmission Date: 20141212
  Serious: Yes (Hospitalization)
  Sender: FDA-Public Use
  Company Number: FR-CELGENEUS-056-21880-14032570

PATIENT
  Age: 84 Year
  Sex: Female
  Weight: 50.5 kg

DRUGS (3)
  1. REVLIMID [Suspect]
     Indication: PLASMA CELL MYELOMA
     Route: 048
     Dates: start: 20140227, end: 20140310
  2. BLINDED MLN9708 [Suspect]
     Indication: PLASMA CELL MYELOMA
     Route: 065
     Dates: start: 20140227, end: 20140306
  3. DEXAMETHASONE [Suspect]
     Indication: PLASMA CELL MYELOMA
     Route: 048
     Dates: start: 20140227, end: 20140306

REACTIONS (2)
  - Pneumonia pneumococcal [Recovered/Resolved with Sequelae]
  - Meningitis [Recovered/Resolved with Sequelae]
